FAERS Safety Report 10970948 (Version 1)
Quarter: 2015Q1

REPORT INFORMATION
  Report Type: Report from Study
  Country: AU (occurrence: AU)
  Receive Date: 20150331
  Receipt Date: 20150331
  Transmission Date: 20150721
  Serious: Yes (Other)
  Sender: FDA-Public Use
  Company Number: PHHO2015AU004576

PATIENT
  Sex: Female

DRUGS (1)
  1. LBH589 [Suspect]
     Active Substance: PANOBINOSTAT
     Indication: HAEMATOLOGICAL MALIGNANCY
     Route: 048

REACTIONS (1)
  - Bone neoplasm [Unknown]
